FAERS Safety Report 19278655 (Version 2)
Quarter: 2021Q3

REPORT INFORMATION
  Report Type: Spontaneous
  Country: RO (occurrence: RO)
  Receive Date: 20210520
  Receipt Date: 20210929
  Transmission Date: 20211014
  Serious: Yes (Hospitalization, Other)
  Sender: FDA-Public Use
  Company Number: RO-MYLANLABS-2021M1028718

PATIENT
  Age: 37 Year
  Sex: Female
  Weight: 48 kg

DRUGS (8)
  1. ADALIMUMAB [Suspect]
     Active Substance: ADALIMUMAB
     Dosage: UNK
     Route: 065
     Dates: start: 201910
  2. MESALAZINE [Concomitant]
     Active Substance: MESALAMINE
     Indication: CROHN^S DISEASE
     Dosage: 3 GRAM, QD
  3. ADALIMUMAB [Suspect]
     Active Substance: ADALIMUMAB
     Dosage: UNK
     Route: 058
     Dates: start: 201910, end: 202008
  4. AZATHIOPRINE. [Concomitant]
     Active Substance: AZATHIOPRINE
     Dosage: UNK
     Route: 065
  5. AMOXICILLIN+CLAVULANIC ACID        /00756801/ [Concomitant]
     Active Substance: AMOXICILLIN\CLAVULANATE POTASSIUM
     Indication: PHARYNGITIS
     Dosage: UNK
  6. CEFTRIAXONE. [Concomitant]
     Active Substance: CEFTRIAXONE
     Indication: ENTEROBACTER INFECTION
     Dosage: UNK
  7. AZATHIOPRINE. [Concomitant]
     Active Substance: AZATHIOPRINE
     Indication: CROHN^S DISEASE
     Dosage: 100 MILLIGRAM, QD
  8. ADALIMUMAB [Suspect]
     Active Substance: ADALIMUMAB
     Indication: CROHN^S DISEASE
     Dosage: UNK
     Route: 048
     Dates: start: 201910, end: 202008

REACTIONS (21)
  - Asthenia [Unknown]
  - Pharyngitis [Unknown]
  - Dysphagia [Unknown]
  - Odynophagia [Unknown]
  - Bacillus infection [Unknown]
  - Night sweats [Unknown]
  - Condition aggravated [Unknown]
  - Hypochromic anaemia [Unknown]
  - Red blood cell sedimentation rate increased [Unknown]
  - Hypoalbuminaemia [Unknown]
  - Weight decreased [Unknown]
  - Lymphopenia [Unknown]
  - International normalised ratio increased [Unknown]
  - Extrapulmonary tuberculosis [Recovering/Resolving]
  - Tonsillar hypertrophy [Unknown]
  - Pulmonary tuberculosis [Recovering/Resolving]
  - Salivary hypersecretion [Unknown]
  - Enterobacter infection [Unknown]
  - Tonsillitis [Unknown]
  - Angina pectoris [Unknown]
  - Prothrombin level decreased [Unknown]

NARRATIVE: CASE EVENT DATE: 2020
